FAERS Safety Report 8200584-1 (Version None)
Quarter: 2012Q1

REPORT INFORMATION
  Report Type: 
  Country: None (occurrence: None)
  Receive Date: 20120312
  Receipt Date: 20120228
  Transmission Date: 20120608
  Serious: Yes (Other)
  Sender: FDA-Public Use
  Company Number: BR-RANBAXY-2012R5-53642

PATIENT

DRUGS (1)
  1. CEFUROXIME AXETIL [Suspect]
     Indication: SINUSITIS
     Dosage: 2.5 ML, BID
     Route: 048
     Dates: start: 20120227

REACTIONS (5)
  - IRRITABILITY [None]
  - FOOD AVERSION [None]
  - SWELLING [None]
  - TONGUE DISORDER [None]
  - VOMITING [None]
